FAERS Safety Report 10538232 (Version 5)
Quarter: 2016Q2

REPORT INFORMATION
  Report Type: Spontaneous
  Country: US (occurrence: US)
  Receive Date: 20141023
  Receipt Date: 20160405
  Transmission Date: 20160815
  Serious: Yes (Hospitalization, Other)
  Sender: FDA-Public Use
  Company Number: US-PFIZER INC-2014287811

PATIENT
  Age: 42 Year
  Sex: Female
  Weight: 82.54 kg

DRUGS (14)
  1. XALKORI [Suspect]
     Active Substance: CRIZOTINIB
     Dosage: 200 MG, 2X/DAY
     Route: 048
     Dates: start: 2012
  2. ARIXTRA [Concomitant]
     Active Substance: FONDAPARINUX SODIUM
     Dosage: 7.5 ML, 1X/DAY
  3. CLARITIN-D 12 HOUR [Concomitant]
     Active Substance: LORATADINE\PSEUDOEPHEDRINE SULFATE
     Dosage: 10 MG, 1X/DAY
  4. VITAMIN D [Concomitant]
     Active Substance: CHOLECALCIFEROL
     Dosage: 5000 IU, 1X/DAY
  5. VITAMIN B12 [Concomitant]
     Active Substance: CYANOCOBALAMIN
  6. FOLIC ACID. [Concomitant]
     Active Substance: FOLIC ACID
  7. NEXIUM [Concomitant]
     Active Substance: ESOMEPRAZOLE MAGNESIUM
     Dosage: 10 MG, UNK
  8. VITAMINS NOS [Concomitant]
     Active Substance: VITAMINS
     Dosage: ONCE A DAY
  9. STOOL SOFTENER [Concomitant]
     Active Substance: DOCUSATE CALCIUM
  10. LASIX [Concomitant]
     Active Substance: FUROSEMIDE
     Dosage: 40 MG, DAILY
  11. MAGNESIUM CITRATE. [Concomitant]
     Active Substance: MAGNESIUM CITRATE
     Dosage: 135 MG, 1X/DAY
  12. XALKORI [Suspect]
     Active Substance: CRIZOTINIB
     Indication: LUNG CANCER METASTATIC
     Dosage: 250MG, 2X/DAY (TWO TABLETS, 10-12 HOURS APART)
     Route: 048
     Dates: start: 2012
  13. SENNA FRUIT [Concomitant]
     Dosage: UNK (ONCE OR TWICE, TWO A DAY ONCE IN MORNING AND ONE IN THE EVENING)., 2X/DAY
  14. CLARITIN [Concomitant]
     Active Substance: LORATADINE
     Dosage: 1X/DAY

REACTIONS (12)
  - Fluid retention [Unknown]
  - Eye disorder [Unknown]
  - Abasia [Not Recovered/Not Resolved]
  - Anaemia [Unknown]
  - Visual impairment [Unknown]
  - Hypoaesthesia [Unknown]
  - Limb discomfort [Not Recovered/Not Resolved]
  - Fall [Unknown]
  - Peripheral swelling [Not Recovered/Not Resolved]
  - Asthenia [Not Recovered/Not Resolved]
  - Dyspnoea [Not Recovered/Not Resolved]
  - Skin discolouration [Recovering/Resolving]

NARRATIVE: CASE EVENT DATE: 2012
